FAERS Safety Report 22653465 (Version 1)
Quarter: 2023Q2

REPORT INFORMATION
  Report Type: Spontaneous
  Country: US (occurrence: US)
  Receive Date: 20230629
  Receipt Date: 20230629
  Transmission Date: 20230721
  Serious: Yes (Hospitalization)
  Sender: FDA-Public Use
  Company Number: US-Kiniksa Pharmaceuticals Ltd.-2023KPU000572

PATIENT
  Age: 48 Year
  Sex: Male

DRUGS (1)
  1. ARCALYST [Suspect]
     Active Substance: RILONACEPT
     Indication: Pericarditis
     Route: 058
     Dates: start: 202112

REACTIONS (5)
  - Infected dermal cyst [Unknown]
  - Dermal cyst [Unknown]
  - Staphylococcal infection [Unknown]
  - Dermal cyst [Unknown]
  - Dermal cyst [Unknown]

NARRATIVE: CASE EVENT DATE: 20221201
